FAERS Safety Report 9431826 (Version 2)
Quarter: 2013Q3

REPORT INFORMATION
  Report Type: Spontaneous
  Country: BR (occurrence: BR)
  Receive Date: 20130731
  Receipt Date: 20130806
  Transmission Date: 20140515
  Serious: Yes (Other)
  Sender: FDA-Public Use
  Company Number: PHHY2013BR052757

PATIENT
  Sex: Male
  Weight: 60 kg

DRUGS (4)
  1. RITALINA [Suspect]
     Indication: ATTENTION DEFICIT/HYPERACTIVITY DISORDER
     Dosage: TWO TABLETS IN THE MORNING AND TWO TABLETS IN THE AFTERNOON ON TUESDAYS AND THURSDAYS
     Route: 048
  2. RITALINA [Suspect]
     Dosage: TWO TABLETS IN THE MORNING, ON THE WEEKENDS AND WHEN HAD EXAMS
  3. RITALIN LA [Suspect]
     Indication: ATTENTION DEFICIT/HYPERACTIVITY DISORDER
     Dosage: FIRST TWO DAYS USED TWO CAPSULES PER DAY
     Route: 048
  4. RITALIN LA [Suspect]
     Dosage: ONE CAPSULE PER DAY
     Route: 048
     Dates: start: 201304

REACTIONS (7)
  - Drug dependence [Not Recovered/Not Resolved]
  - Phobia [Recovering/Resolving]
  - Anxiety [Recovering/Resolving]
  - Fear [Recovering/Resolving]
  - Decreased appetite [Not Recovered/Not Resolved]
  - Feeling abnormal [Unknown]
  - Incorrect dose administered [Unknown]
